FAERS Safety Report 21403609 (Version 1)
Quarter: 2022Q4

REPORT INFORMATION
  Report Type: Spontaneous
  Country: US (occurrence: US)
  Receive Date: 20221003
  Receipt Date: 20221003
  Transmission Date: 20230112
  Serious: No
  Sender: FDA-Public Use
  Company Number: US-drreddys-SPO/USA/22/0154437

PATIENT
  Sex: Male

DRUGS (1)
  1. OLANZAPINE [Suspect]
     Active Substance: OLANZAPINE
     Indication: Hallucination, auditory
     Dates: start: 20220824

REACTIONS (5)
  - Dry eye [Unknown]
  - Eye pruritus [Unknown]
  - Rash [Unknown]
  - Drug ineffective [Unknown]
  - Product quality issue [Unknown]
